FAERS Safety Report 7552693-8 (Version None)
Quarter: 2011Q2

REPORT INFORMATION
  Report Type: 
  Country: None (occurrence: None)
  Receive Date: 20110616
  Receipt Date: 20110603
  Transmission Date: 20111010
  Serious: Yes (Hospitalization)
  Sender: FDA-Public Use
  Company Number: PHHY2011FR49020

PATIENT
  Age: 49 Year
  Sex: Male

DRUGS (7)
  1. TACROLIMUS [Suspect]
     Dosage: 2 MG/KG
  2. PREDNISONE [Concomitant]
     Dosage: 1 MG/KG
  3. PREDNISONE [Concomitant]
     Dosage: 15 MG
  4. PREDNISONE [Concomitant]
     Dosage: 10 MG
  5. ANTI-THYMOCYTE GLOBULIN NOS [Concomitant]
  6. MYCOPHENOLIC ACID [Suspect]
     Indication: IMMUNOSUPPRESSION
  7. TACROLIMUS [Suspect]
     Dosage: 7 MG/KG

REACTIONS (16)
  - DEPRESSED LEVEL OF CONSCIOUSNESS [None]
  - DIABETES MELLITUS [None]
  - CONFUSIONAL STATE [None]
  - LYMPHOPENIA [None]
  - INTRACRANIAL PRESSURE INCREASED [None]
  - IMMUNE RECONSTITUTION SYNDROME [None]
  - MENINGITIS [None]
  - GAIT DISTURBANCE [None]
  - HYPERTENSION [None]
  - PYREXIA [None]
  - CRYPTOCOCCOSIS [None]
  - CYTOMEGALOVIRUS INFECTION [None]
  - ANTEROGRADE AMNESIA [None]
  - HEADACHE [None]
  - PAPILLOEDEMA [None]
  - URINARY TRACT INFECTION [None]
